FAERS Safety Report 4575994-4 (Version None)
Quarter: 2005Q1

REPORT INFORMATION
  Report Type: 
  Country: None (occurrence: None)
  Receive Date: 20050209
  Receipt Date: 20030718
  Transmission Date: 20050727
  Serious: Yes (Hospitalization)
  Sender: FDA-Public Use
  Company Number: DE-ROCHE-342577

PATIENT
  Age: 64 Year
  Sex: Male

DRUGS (69)
  1. MYCOPHENOLATE MOFETIL [Suspect]
     Route: 048
     Dates: start: 20030628, end: 20030703
  2. MYCOPHENOLATE MOFETIL [Suspect]
     Route: 048
     Dates: start: 20030704, end: 20030713
  3. MYCOPHENOLATE MOFETIL [Suspect]
     Route: 048
     Dates: start: 20030714, end: 20030715
  4. MYCOPHENOLATE MOFETIL [Suspect]
     Route: 048
     Dates: start: 20030716, end: 20040216
  5. MYCOPHENOLATE MOFETIL [Suspect]
     Route: 048
     Dates: start: 20040402
  6. DACLIZUMAB [Suspect]
     Route: 042
     Dates: start: 20030628, end: 20030628
  7. DACLIZUMAB [Suspect]
     Route: 042
     Dates: start: 20030711, end: 20030825
  8. CYCLOSPORINE [Suspect]
     Route: 048
     Dates: start: 20030628, end: 20030629
  9. CYCLOSPORINE [Suspect]
     Route: 048
     Dates: start: 20030630, end: 20030630
  10. CYCLOSPORINE [Suspect]
     Route: 048
     Dates: start: 20030701, end: 20030711
  11. CYCLOSPORINE [Suspect]
     Route: 048
     Dates: start: 20030712, end: 20030715
  12. CYCLOSPORINE [Suspect]
     Route: 048
     Dates: start: 20030716, end: 20030716
  13. CYCLOSPORINE [Suspect]
     Route: 048
     Dates: start: 20030717, end: 20030717
  14. CYCLOSPORINE [Suspect]
     Route: 048
     Dates: start: 20030718, end: 20030722
  15. CYCLOSPORINE [Suspect]
     Route: 048
     Dates: start: 20030723, end: 20030804
  16. CYCLOSPORINE [Suspect]
     Route: 048
     Dates: start: 20030805, end: 20030818
  17. CYCLOSPORINE [Suspect]
     Route: 048
     Dates: start: 20030819, end: 20030918
  18. CYCLOSPORINE [Suspect]
     Route: 048
     Dates: start: 20030919, end: 20030929
  19. CYCLOSPORINE [Suspect]
     Route: 048
     Dates: start: 20030930, end: 20040203
  20. CYCLOSPORINE [Suspect]
     Route: 048
     Dates: start: 20040204, end: 20040225
  21. CYCLOSPORINE [Suspect]
     Route: 048
     Dates: start: 20040226, end: 20040303
  22. CYCLOSPORINE [Suspect]
     Route: 048
     Dates: start: 20040304, end: 20040316
  23. CYCLOSPORINE [Suspect]
     Route: 048
     Dates: start: 20040317, end: 20040627
  24. CYCLOSPORINE [Suspect]
     Route: 048
     Dates: start: 20040628
  25. PREDNISOLONE [Suspect]
     Route: 042
     Dates: start: 20030628, end: 20030628
  26. PREDNISOLONE [Suspect]
     Route: 042
     Dates: start: 20030703, end: 20030705
  27. PREDNISOLONE [Suspect]
     Route: 042
     Dates: start: 20030729, end: 20030729
  28. PREDNISOLONE [Suspect]
     Route: 048
     Dates: start: 20030629
  29. PREDNISOLONE [Suspect]
     Route: 048
     Dates: start: 20030630, end: 20030702
  30. PREDNISOLONE [Suspect]
     Route: 048
     Dates: start: 20030703
  31. PREDNISOLONE [Suspect]
     Route: 048
     Dates: start: 20030706, end: 20030708
  32. PREDNISOLONE [Suspect]
     Route: 048
     Dates: start: 20030709, end: 20030711
  33. PREDNISOLONE [Suspect]
     Route: 048
     Dates: start: 20030712, end: 20030714
  34. PREDNISOLONE [Suspect]
     Route: 048
     Dates: start: 20030715, end: 20030721
  35. PREDNISOLONE [Suspect]
     Route: 048
     Dates: start: 20030722, end: 20030728
  36. PREDNISOLONE [Suspect]
     Route: 048
     Dates: start: 20030730, end: 20030805
  37. PREDNISOLONE [Suspect]
     Route: 048
     Dates: start: 20030806, end: 20030904
  38. PREDNISOLONE [Suspect]
     Route: 048
     Dates: start: 20030905, end: 20031002
  39. PREDNISOLONE [Suspect]
     Route: 048
     Dates: start: 20031003, end: 20031030
  40. PREDNISOLONE [Suspect]
     Route: 048
     Dates: start: 20031031, end: 20031127
  41. PREDNISOLONE [Suspect]
     Route: 048
     Dates: start: 20031128, end: 20031225
  42. PREDNISOLONE [Suspect]
     Route: 048
     Dates: start: 20031226
  43. PANTOPRAZOLE SODIUM [Concomitant]
     Route: 048
  44. ACTONEL [Concomitant]
     Route: 048
     Dates: start: 20030629, end: 20040218
  45. AMPICILLIN SODIUM/SULBACTAM SODIUM [Concomitant]
     Route: 048
     Dates: start: 20030628, end: 20030823
  46. AMPHO MORONAL [Concomitant]
     Dosage: FORM: REPORTED AS PIP.
     Route: 048
     Dates: start: 20030629
  47. METOPROLOL SUCCINATE [Concomitant]
     Route: 048
     Dates: start: 20030629, end: 20030809
  48. CALCET [Concomitant]
     Route: 048
     Dates: end: 20030717
  49. ANTI-PHOSPHAT [Concomitant]
     Route: 048
     Dates: end: 20030721
  50. BAYOTENSIN [Concomitant]
     Route: 048
     Dates: end: 20030124
  51. CYMEVEN [Concomitant]
     Route: 048
     Dates: start: 20030704, end: 20030929
  52. ALNA [Concomitant]
     Route: 048
     Dates: start: 20030717
  53. UNAT [Concomitant]
     Route: 048
     Dates: start: 20030617, end: 20030724
  54. ROCALTROL [Concomitant]
     Route: 048
  55. CA BRAUSE [Concomitant]
  56. PENTACARINAT [Concomitant]
     Route: 055
     Dates: start: 20030710, end: 20030710
  57. KEPINOL FORTE [Concomitant]
     Route: 048
     Dates: start: 20030811, end: 20040215
  58. NORVASC [Concomitant]
     Route: 048
  59. LASIX [Concomitant]
     Route: 048
  60. METOPROLOL [Concomitant]
     Route: 048
     Dates: start: 20030811
  61. ALGELDRAT [Concomitant]
     Dates: start: 20030703, end: 20030803
  62. AMPHOTERICIN B [Concomitant]
     Dates: start: 20030629, end: 20030910
  63. AMLODIPINE [Concomitant]
     Dates: start: 20030704
  64. NITRENDIPIN [Concomitant]
     Dates: start: 20030701, end: 20030724
  65. THYMOGLOBULIN [Concomitant]
     Dates: start: 20030703, end: 20030709
  66. ACYCLOVIR [Concomitant]
     Dates: start: 20040217, end: 20040323
  67. ALENDRONSAEURE [Concomitant]
     Dates: start: 20040222
  68. FUROSEMIDE [Concomitant]
     Dates: start: 20030819
  69. MOXIFLOXACIN [Concomitant]
     Dates: start: 20040311, end: 20040315

REACTIONS (4)
  - CHOLESTASIS [None]
  - HERPES ZOSTER [None]
  - NEPHROPATHY [None]
  - POST PROCEDURAL URINE LEAK [None]
